FAERS Safety Report 15827559 (Version 2)
Quarter: 2019Q1

REPORT INFORMATION
  Report Type: Spontaneous
  Country: US (occurrence: US)
  Receive Date: 20190115
  Receipt Date: 20190219
  Transmission Date: 20190417
  Serious: No
  Sender: FDA-Public Use
  Company Number: US-PFIZER INC-2019018459

PATIENT
  Age: 80 Year
  Sex: Female
  Weight: 64.85 kg

DRUGS (2)
  1. IBRANCE [Suspect]
     Active Substance: PALBOCICLIB
     Indication: BREAST CANCER
     Dosage: 125 MG, CYCLIC (1 CAPSULE, DAILY, 1-21 DAYS)
     Route: 048
     Dates: start: 20181119
  2. IBRANCE [Suspect]
     Active Substance: PALBOCICLIB
     Dosage: 125 MG, CYCLIC (1 CAPSULE, DAILY, 1-21 DAYS)
     Route: 048
     Dates: start: 20181124

REACTIONS (2)
  - Pruritus [Unknown]
  - Neoplasm progression [Unknown]
